FAERS Safety Report 21859772 (Version 2)
Quarter: 2023Q2

REPORT INFORMATION
  Report Type: Report from Study
  Country: US (occurrence: US)
  Receive Date: 20230113
  Receipt Date: 20230418
  Transmission Date: 20230722
  Serious: Yes (Hospitalization)
  Sender: FDA-Public Use
  Company Number: US-INSMED, INC.-2022-03270-US

PATIENT
  Sex: Female

DRUGS (1)
  1. ARIKAYCE [Suspect]
     Active Substance: AMIKACIN
     Indication: Product used for unknown indication
     Dosage: 590 MILLIGRAM, QD
     Route: 055
     Dates: start: 20220924, end: 20230406

REACTIONS (5)
  - Hospitalisation [Unknown]
  - Vomiting [Unknown]
  - Malaise [Unknown]
  - Product dose omission issue [Unknown]
  - Therapy interrupted [Unknown]
